FAERS Safety Report 5726771-X (Version None)
Quarter: 2008Q2

REPORT INFORMATION
  Report Type: 
  Country: None (occurrence: None)
  Receive Date: 20080502
  Receipt Date: 20080421
  Transmission Date: 20081010
  Serious: Yes (Other)
  Sender: FDA-Public Use
  Company Number: US-PFIZER INC-2007107742

PATIENT
  Age: 44 Year
  Sex: Female
  Weight: 68 kg

DRUGS (5)
  1. CHANTIX [Suspect]
     Indication: TOBACCO ABUSE
     Dates: start: 20071001, end: 20071119
  2. AVELOX [Concomitant]
     Indication: SINUSITIS
     Dates: start: 20071107, end: 20071128
  3. BIAXIN [Concomitant]
     Indication: SINUSITIS
     Dates: start: 20071024, end: 20071106
  4. NASONEX [Concomitant]
     Route: 045
  5. AUGMENTIN '125' [Concomitant]
     Dates: start: 20071009, end: 20071019

REACTIONS (2)
  - DEPRESSION [None]
  - IMPAIRED WORK ABILITY [None]
